FAERS Safety Report 5502470-4 (Version None)
Quarter: 2007Q4

REPORT INFORMATION
  Report Type: 
  Country: None (occurrence: None)
  Receive Date: 20071030
  Receipt Date: 20071019
  Transmission Date: 20080405
  Serious: Yes (Hospitalization)
  Sender: FDA-Public Use
  Company Number: DE-PFIZER INC-2007089098

PATIENT
  Sex: Female

DRUGS (1)
  1. DEPO-CLINOVIR [Suspect]
     Route: 030
     Dates: start: 20030701, end: 20030701

REACTIONS (2)
  - DYSPEPSIA [None]
  - GASTRIC PH DECREASED [None]
